FAERS Safety Report 9105207 (Version 1)
Quarter: 2013Q1

REPORT INFORMATION
  Report Type: Spontaneous
  Country: US (occurrence: US)
  Receive Date: 20130220
  Receipt Date: 20130220
  Transmission Date: 20140127
  Serious: Yes (Hospitalization, Other)
  Sender: FDA-Public Use
  Company Number: US-ROXANE LABORATORIES, INC.-2013-RO-00261RO

PATIENT
  Sex: Female

DRUGS (31)
  1. DIGOXIN [Suspect]
     Indication: ATRIAL FIBRILLATION
     Dosage: 125 MCG
     Route: 048
  2. AMLODIPINE [Suspect]
     Dosage: 10 MG
     Route: 048
  3. LORAZEPAM [Suspect]
     Indication: SLEEP DISORDER
     Route: 048
  4. PREDNISONE [Suspect]
     Route: 048
  5. DIPHENOXYLATE HCL AND ATROPINE SULFATE [Suspect]
     Indication: DIARRHOEA
     Route: 048
  6. CALCIUM CARBONATE\VITAMIN D [Suspect]
     Route: 048
  7. CARISOPRODOL [Suspect]
  8. DICYCLOMINE [Suspect]
     Dosage: 40 MG
     Route: 048
  9. FENTANYL [Suspect]
     Route: 062
  10. FLUTICASONE/SALMETEROL [Suspect]
     Route: 055
  11. HALOPERIDOL [Suspect]
     Indication: DELIRIUM
     Route: 048
  12. HYDROCODONE/ACETAMINOPHEN [Suspect]
     Indication: PAIN
     Route: 048
  13. METAXALONE [Suspect]
     Route: 048
  14. ACETAMINOPHEN [Concomitant]
     Indication: PAIN
     Route: 048
  15. ACETAMINOPHEN [Concomitant]
     Indication: PYREXIA
  16. ASPIRIN [Concomitant]
     Dosage: 325 MG
     Route: 048
  17. ESOMEPRAZOLE [Concomitant]
     Dosage: 80 MG
     Route: 048
  18. ESOMEPRAZOLE [Concomitant]
     Dosage: 20 MG
     Route: 048
  19. EZETIMIBE [Concomitant]
     Dosage: 10 MG
     Route: 048
  20. SACCHAROMYCES BOULARDII [Concomitant]
     Dosage: 500 MG
     Route: 048
  21. POTASSIUM CHLORIDE [Concomitant]
     Route: 048
  22. LEVALBUTEROL [Concomitant]
     Indication: DYSPNOEA
  23. LEVOTHYROXINE [Concomitant]
     Dosage: 50 MCG
     Route: 048
  24. MEMANTINE [Concomitant]
     Dosage: 10 MG
     Route: 048
  25. PSYLLIUM [Concomitant]
     Indication: CONSTIPATION
     Route: 048
  26. METOPROLOL SUCCINATE [Concomitant]
     Dosage: 200 MG
     Route: 048
  27. METOPROLOL TARTRATE [Concomitant]
     Dosage: 200 MG
     Route: 048
  28. ROSUVASTATIN [Concomitant]
     Dosage: 10 MG
     Route: 048
  29. SUCRALFATE [Concomitant]
     Dosage: 4 G
     Route: 048
  30. TERAPERATIDE [Concomitant]
     Dosage: 20 MCG
     Route: 058
  31. VITAMIN D [Concomitant]
     Dosage: 1000 U
     Route: 048

REACTIONS (7)
  - Delirium [Recovered/Resolved]
  - Escherichia urinary tract infection [Recovered/Resolved]
  - Toxicity to various agents [Unknown]
  - Constipation [Recovered/Resolved]
  - Major depression [Recovered/Resolved]
  - Osteoporosis [Unknown]
  - Multiple fractures [Unknown]
